FAERS Safety Report 8397449 (Version 2)
Quarter: 2012Q4

REPORT INFORMATION
  Report Type: Spontaneous
  Country: US (occurrence: None)
  Receive Date: 20120131
  Receipt Date: 20121106
  Transmission Date: 20130627
  Serious: Yes (Disabling, Other)
  Sender: FDA-Public Use
  Company Number: 2012MA000978

PATIENT
  Sex: Male
  Weight: 84.37 kg

DRUGS (31)
  1. BACLOFEN [Concomitant]
  2. BENZONATATE [Concomitant]
  3. CELEBREX [Concomitant]
  4. CIPROFLOXACIN [Concomitant]
  5. CYCLOBENZAPRINE [Concomitant]
  6. DESONIDE [Concomitant]
  7. DETROL LA [Concomitant]
  8. DOXYCYCLINE [Concomitant]
  9. FLOMAX [Concomitant]
  10. HYDROCODONE [Concomitant]
  11. LEVAQUIN [Concomitant]
  12. METHYLPREDNISOLONE [Concomitant]
  13. MIRAPEX [Concomitant]
  14. NEXIUM [Concomitant]
  15. OXYCODONE [Concomitant]
  16. PLAVIX [Concomitant]
  17. PREDNISONE [Concomitant]
  18. PROAIR [Concomitant]
  19. PROPOXYPHENE/ACETAMINOPHEN [Concomitant]
  20. PROVENTIL [Concomitant]
  21. QUININE SULFATE [Concomitant]
  22. SUCRALFATE [Concomitant]
  23. SULFAMETHOXAZOLE/TMP DS [Concomitant]
  24. TRETINOIN [Concomitant]
  25. TUSSIONEX PENNKINETIC [Concomitant]
  26. VIAGRA [Concomitant]
  27. WELLBUTRIN [Concomitant]
  28. METOCLOPRAMIDE [Suspect]
     Indication: GERD
     Dates: start: 20050331, end: 20090203
  29. ADVAIR [Concomitant]
  30. ALBUTEROL [Concomitant]
  31. AMOXICILLIN [Concomitant]

REACTIONS (14)
  - Injury [None]
  - Extrapyramidal disorder [None]
  - Anxiety [None]
  - Anhedonia [None]
  - Economic problem [None]
  - Activities of daily living impaired [None]
  - Osteoarthritis [None]
  - Muscle spasms [None]
  - Muscle spasms [None]
  - Balance disorder [None]
  - Myoclonus [None]
  - Neuropathy peripheral [None]
  - Bronchitis [None]
  - Vitamin B12 decreased [None]
